FAERS Safety Report 15450488 (Version 1)
Quarter: 2018Q4

REPORT INFORMATION
  Report Type: Report from Study
  Country: US (occurrence: US)
  Receive Date: 20181001
  Receipt Date: 20181001
  Transmission Date: 20190204
  Serious: Yes (Death, Other)
  Sender: FDA-Public Use
  Company Number: US-AUROBINDO-AUR-APL-2018-048221

PATIENT
  Age: 53 Year
  Sex: Female

DRUGS (1)
  1. ACETAMINOPHEN. [Suspect]
     Active Substance: ACETAMINOPHEN
     Indication: PRODUCT USED FOR UNKNOWN INDICATION
     Dosage: UNK
     Route: 065

REACTIONS (6)
  - Hepatotoxicity [Fatal]
  - Coma [Fatal]
  - Metabolic acidosis [Fatal]
  - Coagulopathy [Fatal]
  - Acute kidney injury [Fatal]
  - Depressed level of consciousness [Fatal]
